APPROVED DRUG PRODUCT: PREDNISOLONE SODIUM PHOSPHATE
Active Ingredient: PREDNISOLONE SODIUM PHOSPHATE
Strength: EQ 15MG BASE/5ML
Dosage Form/Route: SOLUTION;ORAL
Application: A075250 | Product #001
Applicant: BAUSCH HEALTH US LLC
Approved: Jul 12, 2002 | RLD: No | RS: No | Type: DISCN